FAERS Safety Report 14304954 (Version 1)
Quarter: 2017Q4

REPORT INFORMATION
  Report Type: Spontaneous
  Country: JP (occurrence: JP)
  Receive Date: 20171219
  Receipt Date: 20171219
  Transmission Date: 20180321
  Serious: Yes (Hospitalization)
  Sender: FDA-Public Use
  Company Number: JP-OTSUKA-005820

PATIENT
  Age: 58 Year
  Sex: Female

DRUGS (16)
  1. DREIASE [Concomitant]
     Dosage: 0.5 G, TID
     Route: 048
  2. PARKINES [Concomitant]
     Dosage: 2 MG, TID
     Route: 048
  3. PARKINANE [Concomitant]
     Active Substance: TRIHEXYPHENIDYL HYDROCHLORIDE
  4. LORAZEPAM. [Concomitant]
     Active Substance: LORAZEPAM
  5. DIGESTIVE ENZYME [Concomitant]
     Active Substance: UNSPECIFIED INGREDIENT
     Dosage: DIGESTIVE ENZYME WITH BIONATTOMIN   FORM: GRANULE
  6. ABILIFY [Suspect]
     Active Substance: ARIPIPRAZOLE
     Dosage: 12 MG, QD
     Route: 048
     Dates: start: 20090219, end: 20090222
  7. ERIMIN [Concomitant]
     Active Substance: NIMETAZEPAM
     Dosage: 3 MG, QD
     Route: 048
     Dates: start: 20090105, end: 20090218
  8. PANPYOTIN [Concomitant]
     Dosage: 1 G, DAILY DOSE
     Route: 048
  9. VENCOLL [Concomitant]
     Active Substance: CASANTHRANOL\DOCUSATE SODIUM
     Dosage: 2 DF, QD
     Route: 048
  10. RISPERIDONE. [Concomitant]
     Active Substance: RISPERIDONE
     Dosage: GRANULE 1%
     Dates: start: 20090218
  11. ERGOSPAON [Concomitant]
     Dosage: 1 MG, TID
     Route: 048
  12. SENNOSIDE A [Concomitant]
     Active Substance: SENNOSIDE A
     Dosage: 24 MG, QD
     Route: 048
     Dates: end: 20090218
  13. VEGETAMIN-B [Concomitant]
     Active Substance: CHLORPROMAZINE HYDROCHLORIDE\PHENOBARBITAL\PROMETHAZINE
     Dosage: TABS
  14. ABILIFY [Suspect]
     Active Substance: ARIPIPRAZOLE
     Indication: SCHIZOPHRENIA
     Dosage: 24 MG, QD
     Route: 048
     Dates: start: 20080903, end: 20090218
  15. DORAL [Concomitant]
     Active Substance: QUAZEPAM
     Dosage: 30 MG, QD
     Route: 048
  16. CASANTHRANOL + DOCUSATE SODIUM [Concomitant]
     Dosage: FORM: ENTERIC TABLET

REACTIONS (5)
  - Hallucination [Recovering/Resolving]
  - Delusion [Recovering/Resolving]
  - Thinking abnormal [Recovering/Resolving]
  - Agitation [Recovered/Resolved]
  - Decreased activity [Recovered/Resolved]

NARRATIVE: CASE EVENT DATE: 20090217
